FAERS Safety Report 8810776 (Version 1)
Quarter: 2012Q4

REPORT INFORMATION
  Report Type: Spontaneous
  Country: US (occurrence: None)
  Receive Date: 20120924
  Receipt Date: 20120924
  Transmission Date: 20130627
  Serious: Yes (Death)
  Sender: FDA-Public Use
  Company Number: None

PATIENT
  Age: 66 Year
  Weight: 68.04 kg

DRUGS (1)
  1. SEROQUEL [Suspect]
     Indication: DEPRESSION

REACTIONS (6)
  - Aggression [None]
  - Crime [None]
  - Completed suicide [None]
  - Gun shot wound [None]
  - Imprisonment [None]
  - Therapy cessation [None]
